FAERS Safety Report 4901609-9 (Version None)
Quarter: 2006Q1

REPORT INFORMATION
  Report Type: 
  Country: None (occurrence: None)
  Receive Date: 20060206
  Receipt Date: 20050620
  Transmission Date: 20060701
  Serious: Yes (Death, Disabling, Other)
  Sender: FDA-Public Use
  Company Number: US-BRISTOL-MYERS SQUIBB COMPANY-13008735

PATIENT
  Age: 83 Year
  Sex: Female
  Weight: 63 kg

DRUGS (13)
  1. TAXOL [Suspect]
     Indication: BREAST CANCER METASTATIC
     Route: 042
     Dates: start: 20050201, end: 20050405
  2. TAGAMET [Concomitant]
     Indication: PREMEDICATION
     Route: 042
  3. BENADRYL [Concomitant]
     Indication: PREMEDICATION
     Route: 042
  4. DECADRON PHOSPHATE [Concomitant]
     Indication: PREMEDICATION
     Route: 042
  5. ALOXI [Concomitant]
     Indication: PREMEDICATION
     Route: 042
  6. COREG [Concomitant]
  7. SYNTHROID [Concomitant]
  8. VASOTEC RPD [Concomitant]
  9. PREVACID [Concomitant]
  10. LORTAB [Concomitant]
  11. COUMADIN [Concomitant]
  12. ERGOCALCIFEROL [Concomitant]
  13. IMDUR [Concomitant]

REACTIONS (2)
  - MALIGNANT NEOPLASM PROGRESSION [None]
  - NEUROPATHY [None]
